FAERS Safety Report 15221758 (Version 1)
Quarter: 2018Q3

REPORT INFORMATION
  Report Type: Other
  Country: None (occurrence: US)
  Receive Date: 20180731
  Receipt Date: 20180731
  Transmission Date: 20181010
  Serious: Yes (Death, Life-Threatening, Hospitalization, Other)
  Sender: FDA-Public Use
  Company Number: US-MEDAC PHARMA, INC.-2053015

PATIENT
  Age: 82 Year
  Sex: Female

DRUGS (5)
  1. FUROSEMIDE. [Concomitant]
     Active Substance: FUROSEMIDE
  2. METHOTREXATE. [Suspect]
     Active Substance: METHOTREXATE
     Indication: RHEUMATOID ARTHRITIS
  3. DIGOXIN. [Concomitant]
     Active Substance: DIGOXIN
  4. APIXABAN [Concomitant]
     Active Substance: APIXABAN
  5. REPAGLINIDE. [Concomitant]
     Active Substance: REPAGLINIDE

REACTIONS (10)
  - Pancytopenia [Unknown]
  - Ulcer haemorrhage [Unknown]
  - Haematemesis [Unknown]
  - Hypotension [Unknown]
  - Toxicity to various agents [Fatal]
  - Respiratory failure [Fatal]
  - Faeces discoloured [Unknown]
  - Klebsiella infection [Unknown]
  - Septic shock [Fatal]
  - Mouth ulceration [Unknown]
